FAERS Safety Report 8990290 (Version 1)
Quarter: 2012Q4

REPORT INFORMATION
  Report Type: 
  Country: DE (occurrence: DE)
  Receive Date: 20121228
  Receipt Date: 20121228
  Transmission Date: 20130627
  Serious: Yes (Death, Life-Threatening, Congenital Anomaly, Other)
  Sender: FDA-Public Use
  Company Number: DE-TEVA-376370GER

PATIENT
  Age: 0 Year
  Sex: Male

DRUGS (4)
  1. FINLEPSIN [Suspect]
     Route: 064
  2. VIMPAT [Suspect]
     Route: 064
  3. FEMIBION [Concomitant]
     Route: 064
  4. CELESTAN [Concomitant]
     Route: 064

REACTIONS (7)
  - Death neonatal [Fatal]
  - Acute hepatic failure [Fatal]
  - Neonatal cardiac failure [Fatal]
  - Cardiomegaly [Not Recovered/Not Resolved]
  - Arteriovenous malformation [Fatal]
  - Patent ductus arteriosus [Not Recovered/Not Resolved]
  - Atrial septal defect [Not Recovered/Not Resolved]
